FAERS Safety Report 4476821-6 (Version None)
Quarter: 2004Q4

REPORT INFORMATION
  Report Type: 
  Country: None (occurrence: None)
  Receive Date: 20041013
  Receipt Date: 20041007
  Transmission Date: 20050328
  Serious: Yes (Life-Threatening, Other)
  Sender: FDA-Public Use
  Company Number: HQWYE646408OCT04

PATIENT
  Age: 46 Year

DRUGS (1)
  1. RAPAMUNE [Suspect]
     Indication: PROPHYLAXIS AGAINST TRANSPLANT REJECTION
     Dosage: 4 MG 1 X PER 1 DAY, ORAL
     Route: 048
     Dates: start: 20030122

REACTIONS (2)
  - IMMUNOSUPPRESSION [None]
  - PROSTATE CANCER [None]
